FAERS Safety Report 5935120-3 (Version None)
Quarter: 2008Q4

REPORT INFORMATION
  Report Type: 
  Country: None (occurrence: None)
  Receive Date: 20081030
  Receipt Date: 20081009
  Transmission Date: 20090506
  Serious: No
  Sender: FDA-Public Use
  Company Number: US-BAYER-200835942NA

PATIENT
  Age: 30 Year
  Sex: Female
  Weight: 59 kg

DRUGS (1)
  1. OCELLA [Suspect]
     Indication: ORAL CONTRACEPTION
     Route: 048
     Dates: start: 20070101

REACTIONS (1)
  - GENITAL HAEMORRHAGE [None]
